FAERS Safety Report 7533819-9 (Version None)
Quarter: 2011Q2

REPORT INFORMATION
  Report Type: 
  Country: None (occurrence: None)
  Receive Date: 20110608
  Receipt Date: 20060601
  Transmission Date: 20111010
  Serious: Yes (Other)
  Sender: FDA-Public Use
  Company Number: PHMT2006CA01306

PATIENT
  Sex: Male

DRUGS (3)
  1. ZOLOFT [Concomitant]
  2. SANDOSTATIN LAR [Suspect]
     Indication: ACROMEGALY
     Dosage: 20 MG, QMO
     Dates: start: 20040105
  3. ASPIRIN [Concomitant]

REACTIONS (1)
  - LYMPHADENOPATHY [None]
